FAERS Safety Report 5897348-0 (Version None)
Quarter: 2008Q3

REPORT INFORMATION
  Report Type: 
  Country: None (occurrence: None)
  Receive Date: 20080912
  Receipt Date: 20071227
  Transmission Date: 20090109
  Serious: Yes (Hospitalization, Other)
  Sender: FDA-Public Use
  Company Number: 43880

PATIENT
  Sex: Male

DRUGS (1)
  1. CYTARABINE [Suspect]
     Indication: CHRONIC LYMPHOCYTIC LEUKAEMIA
     Dosage: CYTARABINE 1080MG IV D2-4
     Route: 042
     Dates: start: 20071118, end: 20071120

REACTIONS (2)
  - INFECTION [None]
  - RENAL FAILURE [None]
